FAERS Safety Report 14315858 (Version 1)
Quarter: 2017Q4

REPORT INFORMATION
  Report Type: Report from Study
  Country: None (occurrence: BE)
  Receive Date: 20171221
  Receipt Date: 20171221
  Transmission Date: 20180321
  Serious: Yes (Death, Hospitalization)
  Sender: FDA-Public Use
  Company Number: BE-ABBVIE-17K-013-2201609-00

PATIENT
  Sex: Female

DRUGS (3)
  1. DUODOPA [Suspect]
     Active Substance: CARBIDOPA\LEVODOPA
     Dosage: MD=7ML??CD=4.2ML/HR DURING 16HRS ??ED=4ML
     Route: 050
     Dates: start: 20141219, end: 20170320
  2. DUODOPA [Suspect]
     Active Substance: CARBIDOPA\LEVODOPA
     Dosage: MD=7ML??CD=3.8ML/HR DURING 16HRS ??ED=3.5ML
     Route: 050
     Dates: start: 20170320, end: 20171218
  3. DUODOPA [Suspect]
     Active Substance: CARBIDOPA\LEVODOPA
     Indication: PARKINSON^S DISEASE
     Dosage: MD=7ML??CD=3.8ML/HR DURING 16HRS ??ED=4ML
     Route: 050
     Dates: start: 20141215, end: 20141219

REACTIONS (2)
  - Skull fracture [Fatal]
  - Fall [Fatal]
